FAERS Safety Report 5454380-9 (Version None)
Quarter: 2007Q3

REPORT INFORMATION
  Report Type: 
  Country: None (occurrence: None)
  Receive Date: 20070917
  Receipt Date: 20060719
  Transmission Date: 20080115
  Serious: No
  Sender: FDA-Public Use
  Company Number: US-ASTRAZENECA-2006UW14778

PATIENT
  Age: 34 Year
  Sex: Female
  Weight: 91.6 kg

DRUGS (7)
  1. SEROQUEL [Suspect]
     Indication: INSOMNIA
     Route: 048
     Dates: start: 20050201
  2. LANOXIN [Concomitant]
  3. PROTONIX [Concomitant]
  4. LAMICTAL [Concomitant]
  5. BUSPAR [Concomitant]
  6. PROPRANOLOL [Concomitant]
  7. REQUIP [Concomitant]

REACTIONS (3)
  - AGITATION [None]
  - INSOMNIA [None]
  - RESTLESS LEGS SYNDROME [None]
